FAERS Safety Report 4497254-2 (Version None)
Quarter: 2004Q3

REPORT INFORMATION
  Report Type: 
  Country: None (occurrence: None)
  Receive Date: 20040927
  Receipt Date: 20040721
  Transmission Date: 20050211
  Serious: No
  Sender: FDA-Public Use
  Company Number: USA040773268

PATIENT
  Age: 55 Year
  Sex: Female

DRUGS (4)
  1. STRATTERA [Suspect]
     Indication: ATTENTION DEFICIT/HYPERACTIVITY DISORDER
     Dosage: 80 MG IN THE EVENING
     Dates: start: 20040716
  2. FLUOXETINE [Concomitant]
  3. ALLEGRA [Concomitant]
  4. PREVACID [Concomitant]

REACTIONS (4)
  - NAUSEA [None]
  - PAIN [None]
  - SLEEP DISORDER [None]
  - VOMITING [None]
